FAERS Safety Report 16999954 (Version 1)
Quarter: 2019Q4

REPORT INFORMATION
  Report Type: Spontaneous
  Country: US (occurrence: US)
  Receive Date: 20191106
  Receipt Date: 20191106
  Transmission Date: 20200122
  Serious: Yes (Death)
  Sender: FDA-Public Use
  Company Number: US-PFIZER INC-2019407153

PATIENT
  Age: 76 Year
  Sex: Male

DRUGS (3)
  1. INLYTA [Suspect]
     Active Substance: AXITINIB
     Indication: METASTASES TO PERITONEUM
  2. INLYTA [Suspect]
     Active Substance: AXITINIB
     Indication: METASTASES TO LUNG
  3. INLYTA [Suspect]
     Active Substance: AXITINIB
     Indication: RENAL CELL CARCINOMA
     Dosage: 5 MG, 2X/DAY

REACTIONS (1)
  - Death [Fatal]
